FAERS Safety Report 7678849-1 (Version None)
Quarter: 2011Q3

REPORT INFORMATION
  Report Type: 
  Country: None (occurrence: None)
  Receive Date: 20110812
  Receipt Date: 20110802
  Transmission Date: 20111222
  Serious: Yes (Hospitalization, Other)
  Sender: FDA-Public Use
  Company Number: PHEH2005US12254

PATIENT
  Sex: Female

DRUGS (41)
  1. AMBIEN [Concomitant]
  2. ESTRING [Concomitant]
  3. GAVISCON                                /GFR/ [Concomitant]
  4. COUMADIN [Concomitant]
  5. TAMOXIFEN CITRATE [Concomitant]
  6. PACLITAXEL [Concomitant]
  7. OMEPRAZOLE [Concomitant]
  8. SYNTHROID [Concomitant]
  9. ACTIFED [Concomitant]
  10. PYRIDOXINE HYDROCHLORIDE [Concomitant]
  11. FEMARA [Concomitant]
     Indication: BREAST CANCER
     Dates: start: 20040319
  12. CELEBREX [Concomitant]
  13. FISH OIL [Concomitant]
  14. LOVENOX [Concomitant]
  15. COMPAZINE [Concomitant]
  16. ZOLPIDEM [Concomitant]
  17. BENADRYL [Concomitant]
  18. EFFEXOR [Concomitant]
     Indication: HOT FLUSH
     Dosage: 37.5 MG, QD
  19. CYTOMEL [Concomitant]
     Dosage: 2.5 MG, QD
  20. REGLAN [Concomitant]
  21. RESTORIL [Concomitant]
     Dosage: UNK
     Dates: start: 20030226
  22. CELEBREX [Concomitant]
  23. DIOVAN [Concomitant]
  24. ACIDOPHILUS ^ZYMA^ [Concomitant]
  25. TERBINAFINE HCL [Concomitant]
  26. TRIAMCINOLONE [Concomitant]
  27. GLUCONATE SODIUM [Concomitant]
  28. MACROBID [Concomitant]
  29. GAVISCON                                /GFR/ [Concomitant]
  30. ZOMETA [Suspect]
     Indication: BREAST CANCER
     Dosage: 4 MG, QMO
     Dates: start: 20020507, end: 20021114
  31. ACETAMINOPHEN [Concomitant]
  32. PROVERA [Concomitant]
  33. ESTRADERM [Concomitant]
  34. FORTEO [Concomitant]
     Dosage: UNK
     Dates: start: 20060101
  35. PRILOSEC [Concomitant]
  36. ENOXAPARIN [Concomitant]
  37. ONDANSETRON [Concomitant]
  38. AREDIA [Suspect]
     Indication: BREAST CANCER
     Dosage: 90 MG, QMO
     Dates: start: 20021201, end: 20040610
  39. LYSINE ASPIRIN [Concomitant]
  40. CIMETIDINE [Concomitant]
  41. ACTIFED [Concomitant]

REACTIONS (73)
  - DEFORMITY [None]
  - GENERAL PHYSICAL HEALTH DETERIORATION [None]
  - GINGIVAL ULCERATION [None]
  - SWELLING [None]
  - MICTURITION URGENCY [None]
  - COITAL BLEEDING [None]
  - LACRIMATION INCREASED [None]
  - LACTOSE INTOLERANCE [None]
  - BONE DISORDER [None]
  - HYPOPHAGIA [None]
  - SWOLLEN TONGUE [None]
  - LEUKOCYTOSIS [None]
  - POSTMENOPAUSAL HAEMORRHAGE [None]
  - ATROPHIC VULVOVAGINITIS [None]
  - OEDEMA PERIPHERAL [None]
  - FOLLICULITIS [None]
  - FALL [None]
  - CORNEAL ABRASION [None]
  - ARTHRITIS [None]
  - URINARY TRACT INFECTION [None]
  - INTERVERTEBRAL DISC PROTRUSION [None]
  - DERMATITIS ATOPIC [None]
  - SPONDYLOLISTHESIS [None]
  - GINGIVAL ERYTHEMA [None]
  - GINGIVAL SWELLING [None]
  - ANXIETY [None]
  - EMOTIONAL DISTRESS [None]
  - OEDEMA MOUTH [None]
  - VAGINAL HAEMORRHAGE [None]
  - UTERINE CERVICAL SQUAMOUS METAPLASIA [None]
  - UTERINE POLYP [None]
  - ECZEMA [None]
  - OCULAR HYPERAEMIA [None]
  - SOFT TISSUE INFECTION [None]
  - ANGIOEDEMA [None]
  - BUNDLE BRANCH BLOCK LEFT [None]
  - CEREBRAL ISCHAEMIA [None]
  - GASTROOESOPHAGEAL REFLUX DISEASE [None]
  - TOOTH ABSCESS [None]
  - HOT FLUSH [None]
  - ADNEXA UTERI MASS [None]
  - HYPERLIPIDAEMIA [None]
  - HAEMORRHOIDS [None]
  - FOOT DEFORMITY [None]
  - FOREIGN BODY IN EYE [None]
  - JOINT INJURY [None]
  - DENTAL CARIES [None]
  - CATARACT [None]
  - CONJUNCTIVITIS VIRAL [None]
  - DEEP VEIN THROMBOSIS [None]
  - ONYCHOMYCOSIS [None]
  - BIOPSY TONGUE ABNORMAL [None]
  - NEOPLASM MALIGNANT [None]
  - OSTEONECROSIS OF JAW [None]
  - SALIVARY GLAND ENLARGEMENT [None]
  - ORAL PAIN [None]
  - MONONUCLEOSIS SYNDROME [None]
  - UTERINE ENLARGEMENT [None]
  - LUMBAR SPINAL STENOSIS [None]
  - PAIN IN EXTREMITY [None]
  - SKIN PAPILLOMA [None]
  - DECREASED INTEREST [None]
  - LIFE EXPECTANCY SHORTENED [None]
  - PERIODONTITIS [None]
  - POLYP [None]
  - HYPERTENSION [None]
  - AMNESIA [None]
  - UTERINE LEIOMYOMA [None]
  - OSTEOPENIA [None]
  - TENDON INJURY [None]
  - SCIATICA [None]
  - MUSCLE INJURY [None]
  - NASOPHARYNGITIS [None]
